FAERS Safety Report 5188222-6 (Version None)
Quarter: 2006Q4

REPORT INFORMATION
  Report Type: 
  Country: None (occurrence: None)
  Receive Date: 20061221
  Receipt Date: 20061211
  Transmission Date: 20070319
  Serious: Yes (Disabling)
  Sender: FDA-Public Use
  Company Number: PHRM2006FR03294

PATIENT
  Age: 67 Year
  Sex: Female

DRUGS (1)
  1. ZOMETA [Suspect]
     Indication: METASTASES TO BONE
     Dosage: 4 MG, QMO
     Route: 042
     Dates: start: 20020101

REACTIONS (3)
  - OSTEONECROSIS [None]
  - STOMATITIS NECROTISING [None]
  - TOOTH EXTRACTION [None]
